FAERS Safety Report 10400855 (Version 1)
Quarter: 2014Q3

REPORT INFORMATION
  Report Type: Spontaneous
  Country: US (occurrence: US)
  Receive Date: 20140821
  Receipt Date: 20140821
  Transmission Date: 20150326
  Serious: No
  Sender: FDA-Public Use
  Company Number: US-ASTRAZENECA-2014SE28587

PATIENT
  Age: 60 Year
  Sex: Male
  Weight: 82.6 kg

DRUGS (3)
  1. RESCUE INHALER [Concomitant]
  2. LOSARTAN [Concomitant]
     Active Substance: LOSARTAN
     Indication: BLOOD PRESSURE ABNORMAL
     Dosage: 50 MG
     Route: 048
  3. SYMBICORT [Suspect]
     Active Substance: BUDESONIDE\FORMOTEROL FUMARATE DIHYDRATE
     Indication: CHRONIC OBSTRUCTIVE PULMONARY DISEASE
     Dosage: 160/4.5 MCG, 2 PUFFS BID
     Route: 055

REACTIONS (2)
  - Drug dose omission [Not Recovered/Not Resolved]
  - Dyspnoea [Unknown]
